FAERS Safety Report 16485112 (Version 2)
Quarter: 2019Q3

REPORT INFORMATION
  Report Type: Report from Study
  Country: PL (occurrence: PL)
  Receive Date: 20190627
  Receipt Date: 20190703
  Transmission Date: 20191004
  Serious: Yes (Hospitalization)
  Sender: FDA-Public Use
  Company Number: PHHO2018PL006850

PATIENT
  Age: 72 Year
  Sex: Male
  Weight: 98 kg

DRUGS (8)
  1. NEDAL [Concomitant]
     Active Substance: NEBIVOLOL HYDROCHLORIDE
     Indication: CARDIAC FAILURE CONGESTIVE
     Dosage: 5 MG
     Route: 065
     Dates: start: 20150407
  2. INDOLPLEX [Concomitant]
     Indication: HYPERTENSION
     Dosage: 1.5 MG
     Route: 065
     Dates: start: 20150125
  3. WARFARIN [Concomitant]
     Active Substance: WARFARIN
     Indication: CARDIAC FAILURE CONGESTIVE
     Dosage: 2.5 MG
     Route: 065
     Dates: start: 20150407, end: 20171210
  4. ROMAZIC [Concomitant]
     Active Substance: ROSUVASTATIN CALCIUM
     Indication: HYPERLIPIDAEMIA
     Dosage: 10 MG
     Route: 065
     Dates: start: 20150407
  5. PANPRAZOX [Concomitant]
     Indication: PROPHYLAXIS
     Dosage: 10 MG
     Route: 065
     Dates: start: 20150407
  6. VALSARTAN. [Suspect]
     Active Substance: VALSARTAN
     Indication: CARDIAC FAILURE
     Dosage: CODE NOT BROKEN
     Route: 048
     Dates: start: 20150609
  7. KORLYM [Concomitant]
     Active Substance: MIFEPRISTONE
     Indication: PROPHYLAXIS
     Dosage: 60 MG
     Route: 065
     Dates: start: 2015
  8. AMLOPIN [Concomitant]
     Active Substance: AMLODIPINE BESYLATE
     Indication: HYPERTENSION
     Dosage: 10 MG
     Route: 065
     Dates: start: 20150407

REACTIONS (1)
  - Cholelithiasis [Recovered/Resolved]

NARRATIVE: CASE EVENT DATE: 20171217
